FAERS Safety Report 4830330-0 (Version None)
Quarter: 2005Q4

REPORT INFORMATION
  Report Type: 
  Country: None (occurrence: None)
  Receive Date: 20051114
  Receipt Date: 20051103
  Transmission Date: 20060501
  Serious: Yes (Hospitalization)
  Sender: FDA-Public Use
  Company Number: USA0511112709

PATIENT
  Age: 37 Year
  Sex: Female
  Weight: 128 kg

DRUGS (6)
  1. CYMBALTA [Suspect]
     Dosage: 60 MG DAY
  2. LITHIUM [Concomitant]
  3. ABILIFY (ARIPIRPAZOLE) [Concomitant]
  4. TEGRETOL [Concomitant]
  5. LORAZEPAM [Concomitant]
  6. PROTONIX [Concomitant]

REACTIONS (3)
  - DYSPHAGIA [None]
  - GASTRIC BYPASS [None]
  - POST PROCEDURAL COMPLICATION [None]
